FAERS Safety Report 9102969 (Version 1)
Quarter: 2013Q1

REPORT INFORMATION
  Report Type: Spontaneous
  Country: CA (occurrence: CA)
  Receive Date: 20130218
  Receipt Date: 20130218
  Transmission Date: 20140127
  Serious: Yes (Hospitalization)
  Sender: FDA-Public Use
  Company Number: CA-ELI_LILLY_AND_COMPANY-CA201302002401

PATIENT
  Age: 63 Year
  Sex: Female

DRUGS (8)
  1. FORTEO [Suspect]
     Indication: OSTEOPOROSIS
     Dosage: 20 UG, QD
     Route: 058
     Dates: start: 20101214, end: 20121208
  2. CIPRALEX [Concomitant]
  3. CRESTOR [Concomitant]
  4. SPIRIVA [Concomitant]
  5. VITAMIN D [Concomitant]
  6. ASA [Concomitant]
  7. CALCIUM [Concomitant]
  8. ADVAIR [Concomitant]

REACTIONS (1)
  - Chronic obstructive pulmonary disease [Recovering/Resolving]
